FAERS Safety Report 15379298 (Version 1)
Quarter: 2018Q3

REPORT INFORMATION
  Report Type: Spontaneous
  Country: US (occurrence: US)
  Receive Date: 20180913
  Receipt Date: 20180913
  Transmission Date: 20181010
  Serious: No
  Sender: FDA-Public Use
  Company Number: US-PFIZER INC-2018368582

PATIENT
  Age: 10 Year
  Sex: Male

DRUGS (1)
  1. GENOTROPIN [Suspect]
     Active Substance: SOMATROPIN
     Dosage: 1.0 MG, DAILY

REACTIONS (4)
  - Blood thyroid stimulating hormone increased [Unknown]
  - Blood cholesterol increased [Unknown]
  - Thyroxine free increased [Unknown]
  - Non-high-density lipoprotein cholesterol increased [Unknown]
